FAERS Safety Report 15085180 (Version 1)
Quarter: 2018Q2

REPORT INFORMATION
  Report Type: Spontaneous
  Country: US (occurrence: US)
  Receive Date: 20180628
  Receipt Date: 20180628
  Transmission Date: 20180711
  Serious: Yes (Other)
  Sender: FDA-Public Use
  Company Number: US-GLAXOSMITHKLINE-US2018113817

PATIENT
  Age: 66 Year
  Sex: Male

DRUGS (1)
  1. FLONASE ALLERGY RELIEF [Suspect]
     Active Substance: FLUTICASONE PROPIONATE
     Indication: DRY EYE
     Dosage: UNK
     Dates: start: 20180615

REACTIONS (3)
  - Product use in unapproved indication [Unknown]
  - Seizure [Unknown]
  - Vertigo [Unknown]

NARRATIVE: CASE EVENT DATE: 20180616
